FAERS Safety Report 8833644 (Version 2)
Quarter: 2013Q2

REPORT INFORMATION
  Report Type: Report from Study
  Country: DE (occurrence: DE)
  Receive Date: 20121010
  Receipt Date: 20130426
  Transmission Date: 20140414
  Serious: Yes (Other)
  Sender: FDA-Public Use
  Company Number: DE-ROCHE-1142444

PATIENT
  Sex: Female
  Weight: 70 kg

DRUGS (5)
  1. TOCILIZUMAB [Suspect]
     Indication: RHEUMATOID ARTHRITIS
     Route: 042
     Dates: start: 20120327
  2. CELEBREX [Concomitant]
     Route: 065
     Dates: start: 201202
  3. CALCIMAGON [Concomitant]
     Route: 065
     Dates: start: 201104
  4. PANTOZOL [Concomitant]
  5. LEFLUNOMID [Concomitant]
     Route: 065
     Dates: start: 201209

REACTIONS (2)
  - Blood creatinine increased [Not Recovered/Not Resolved]
  - Sinusitis [Recovered/Resolved]
